FAERS Safety Report 15221603 (Version 1)
Quarter: 2018Q3

REPORT INFORMATION
  Report Type: Spontaneous
  Country: BR (occurrence: BR)
  Receive Date: 20180731
  Receipt Date: 20180731
  Transmission Date: 20181010
  Serious: Yes (Other)
  Sender: FDA-Public Use
  Company Number: BR-SA-2018SA107173

PATIENT
  Age: 44 Year
  Sex: Male
  Weight: 85 kg

DRUGS (16)
  1. CLONAZEPAM. [Suspect]
     Active Substance: CLONAZEPAM
     Indication: ANXIETY
     Dosage: 2 MG,Q8H
     Route: 048
     Dates: start: 20180212, end: 20180215
  2. AMPLICTIL [Suspect]
     Active Substance: CHLORPROMAZINE HYDROCHLORIDE
     Indication: ANXIETY
  3. FLEBOCORTID [Concomitant]
     Active Substance: HYDROCORTISONE SODIUM SUCCINATE
     Indication: INFLAMMATION
     Dosage: UNK UNK, UNK
     Route: 042
     Dates: start: 20180210
  4. CRESTOR [Concomitant]
     Active Substance: ROSUVASTATIN CALCIUM
     Indication: LIPIDS DECREASED
     Dosage: 10 MG, QD
     Route: 045
     Dates: start: 20180203
  5. PANTOZOL [Concomitant]
     Active Substance: PANTOPRAZOLE SODIUM
     Indication: PROPHYLAXIS AGAINST GASTROINTESTINAL ULCER
     Dosage: 40 MG, QD
     Route: 042
     Dates: start: 20180202
  6. LUFTAL [SIMETICONE] [Concomitant]
     Indication: FLATULENCE
     Dosage: 40 UNK, Q6H
     Route: 045
     Dates: start: 20180202
  7. NORVASC [Concomitant]
     Active Substance: AMLODIPINE BESYLATE
     Indication: HYPERTENSION
     Dosage: 5 MG, Q6H
     Route: 045
     Dates: start: 20180205
  8. CLONAZEPAM. [Suspect]
     Active Substance: CLONAZEPAM
     Indication: AGITATION
  9. CLEXANE [Suspect]
     Active Substance: ENOXAPARIN SODIUM
     Indication: THROMBOSIS PROPHYLAXIS
     Dosage: 40 MG, QD
     Route: 058
     Dates: start: 20180202
  10. DIGESAN [Suspect]
     Active Substance: BROMOPRIDE
     Indication: ANTIEMETIC SUPPORTIVE CARE
     Dosage: 10 MG, Q8H
     Route: 042
     Dates: start: 20180202
  11. AMPLICTIL [Suspect]
     Active Substance: CHLORPROMAZINE HYDROCHLORIDE
     Indication: AGITATION
     Dosage: 5 GTT DROPS, Q12H
     Route: 050
     Dates: start: 20180212
  12. BRICANYL [Concomitant]
     Active Substance: TERBUTALINE SULFATE
     Indication: RESPIRATORY DISORDER
     Dosage: 0.5 MG, Q8H
     Route: 058
     Dates: start: 20180202
  13. TARGOCID [Suspect]
     Active Substance: TEICOPLANIN
     Indication: INFECTION
     Dosage: 400 MG, Q12H
     Route: 042
     Dates: start: 20180212
  14. SEROQUEL [Concomitant]
     Active Substance: QUETIAPINE FUMARATE
     Indication: AGITATION
     Dosage: 25 MG, Q8H
     Route: 045
     Dates: start: 20180206
  15. TAZOCIN [Concomitant]
     Active Substance: PIPERACILLIN SODIUM\TAZOBACTAM SODIUM
     Indication: INFECTION
     Dosage: 4.5 G, Q8H
     Route: 042
     Dates: start: 20180209
  16. SEROQUEL [Concomitant]
     Active Substance: QUETIAPINE FUMARATE
     Indication: ANXIETY

REACTIONS (1)
  - Depressed level of consciousness [Recovered/Resolved]

NARRATIVE: CASE EVENT DATE: 20180215
